FAERS Safety Report 8614062-9 (Version None)
Quarter: 2012Q3

REPORT INFORMATION
  Report Type: 
  Country: None (occurrence: None)
  Receive Date: 20120823
  Receipt Date: 20120810
  Transmission Date: 20120928
  Serious: Yes (Hospitalization, Disabling, Other)
  Sender: FDA-Public Use
  Company Number: US-009507513-1203USA02318

PATIENT

DRUGS (7)
  1. INSULIN [Concomitant]
     Indication: TYPE 1 DIABETES MELLITUS
     Dosage: 23-25 IU, QD
     Dates: start: 19620101
  2. FOSAMAX [Suspect]
     Route: 048
     Dates: end: 20080101
  3. CALCIUM (UNSPECIFIED) [Concomitant]
     Indication: OSTEOPOROSIS
     Dosage: 1500 MG, QD
     Dates: start: 19920101
  4. HORMONES (UNSPECIFIED) [Concomitant]
     Dates: start: 19850601, end: 20051201
  5. VITAMIN D [Concomitant]
     Indication: OSTEOPOROSIS
     Dosage: 800 IU, QD
  6. FOSAMAX [Suspect]
     Indication: OSTEOPOROSIS
     Dosage: 70 MG, QW
     Route: 048
     Dates: start: 20020816, end: 20090505
  7. FOSAMAX [Suspect]
     Indication: OSTEOPENIA
     Dosage: 10 MG, QD
     Route: 048
     Dates: start: 19961125

REACTIONS (58)
  - RENAL FAILURE ACUTE [None]
  - FALL [None]
  - TOOTH DISORDER [None]
  - STRESS URINARY INCONTINENCE [None]
  - NEPHROPATHY [None]
  - HYPOALBUMINAEMIA [None]
  - HYPOAESTHESIA [None]
  - POOR QUALITY SLEEP [None]
  - BUNION [None]
  - URINARY TRACT INFECTION [None]
  - DYSLIPIDAEMIA [None]
  - COLONIC POLYP [None]
  - CATARACT [None]
  - FOOT DEFORMITY [None]
  - ANIMAL BITE [None]
  - WEIGHT DECREASED [None]
  - POST PROCEDURAL INFECTION [None]
  - FATIGUE [None]
  - OESOPHAGEAL IRRITATION [None]
  - STOMATITIS [None]
  - DYSPEPSIA [None]
  - CYSTOCELE [None]
  - VASCULAR CALCIFICATION [None]
  - CARPAL TUNNEL SYNDROME [None]
  - OEDEMA PERIPHERAL [None]
  - TRANSFUSION [None]
  - FEMUR FRACTURE [None]
  - RHEUMATOID ARTHRITIS [None]
  - RECTAL HAEMORRHAGE [None]
  - POLYNEUROPATHY [None]
  - MOUTH ULCERATION [None]
  - MALIGNANT MELANOMA [None]
  - BLADDER DYSFUNCTION [None]
  - INTERMITTENT CLAUDICATION [None]
  - HYPERCHOLESTEROLAEMIA [None]
  - TOXICITY TO VARIOUS AGENTS [None]
  - HEART RATE IRREGULAR [None]
  - PAIN IN EXTREMITY [None]
  - DIARRHOEA [None]
  - CARDIAC DISORDER [None]
  - VITAMIN D DEFICIENCY [None]
  - CARPAL TUNNEL DECOMPRESSION [None]
  - RENAL FAILURE CHRONIC [None]
  - ARTHROPATHY [None]
  - ASTHENIA [None]
  - BREAST CALCIFICATIONS [None]
  - ANXIETY [None]
  - FOOT FRACTURE [None]
  - OPEN REDUCTION OF FRACTURE [None]
  - IMPAIRED HEALING [None]
  - ANAEMIA [None]
  - DIABETIC MICROANGIOPATHY [None]
  - OSTEOARTHRITIS [None]
  - NOCTURIA [None]
  - UPPER RESPIRATORY TRACT INFECTION [None]
  - ACQUIRED CLAW TOE [None]
  - BONE DISORDER [None]
  - ARTHRALGIA [None]
